FAERS Safety Report 8935802 (Version 1)
Quarter: 2012Q4

REPORT INFORMATION
  Report Type: 
  Country: US (occurrence: US)
  Receive Date: 20121130
  Receipt Date: 20121130
  Transmission Date: 20130627
  Serious: No
  Sender: FDA-Public Use
  Company Number: US-JNJFOC-20121110795

PATIENT
  Sex: Male
  Weight: 96.16 kg

DRUGS (4)
  1. SANDOZ FENTANYL TRANSDERMAL SYSTEM [Suspect]
     Indication: SPONDYLITIS
     Dosage: NDC 0781-7244-55
     Route: 062
     Dates: start: 201209
  2. ALPRAZOLAM [Concomitant]
     Indication: ANXIETY
     Route: 048
  3. CLONIDINE [Concomitant]
     Indication: DEPRESSION
     Route: 048
  4. VITAMINS (NOS) [Concomitant]
     Indication: PRODUCT USED FOR UNKNOWN INDICATION
     Route: 048

REACTIONS (2)
  - Wrong technique in drug usage process [Not Recovered/Not Resolved]
  - Wrong technique in drug usage process [Not Recovered/Not Resolved]
